FAERS Safety Report 20521189 (Version 4)
Quarter: 2022Q3

REPORT INFORMATION
  Report Type: Spontaneous
  Country: FR (occurrence: FR)
  Receive Date: 20220226
  Receipt Date: 20220726
  Transmission Date: 20221026
  Serious: Yes (Congenital Anomaly, Other)
  Sender: FDA-Public Use
  Company Number: None

PATIENT
  Age: 37 Week
  Sex: Male
  Weight: 2.01 kg

DRUGS (13)
  1. PANTOPRAZOLE [Suspect]
     Active Substance: PANTOPRAZOLE
     Indication: Foetal exposure during pregnancy
     Dosage: MATERNAL EXPOSURE: FROM 02 DEC 2019 TO JAN 2020 AT A DOSE OF 20MG, QD, LAST DOSE ON JAN 2020
     Route: 064
  2. RAMIPRIL [Suspect]
     Active Substance: RAMIPRIL
     Indication: Foetal exposure during pregnancy
     Dosage: MATERNAL EXPOSURE: FROM 02 DEC 2019 TO JAN 2020 AT ADOSE OF 4MG, QD, LAST DOSE ON JAN 2020
     Route: 064
  3. CLARITHROMYCIN [Suspect]
     Active Substance: CLARITHROMYCIN
     Indication: Foetal exposure during pregnancy
     Dosage: MATERNAL EXPOSURE: 500 MG,QD
     Route: 064
  4. FLUCONAZOLE [Suspect]
     Active Substance: FLUCONAZOLE
     Indication: Foetal exposure during pregnancy
     Dosage: MATERNAL EXPOSURE:650 MG,QD
     Route: 064
  5. ETHAMBUTOL HYDROCHLORIDE [Suspect]
     Active Substance: ETHAMBUTOL HYDROCHLORIDE
     Indication: Foetal exposure during pregnancy
     Dosage: MATERNAL EXPOSURE: FROM 02 DEC 2019 TO FEB 2020 AT A DOSE OF 750 MG,QD, LAST DOSE ON FEB 2020
     Route: 064
  6. CLARITHROMYCIN [Suspect]
     Active Substance: CLARITHROMYCIN
     Indication: Foetal exposure during pregnancy
     Dosage: MATERNAL EXPOSURE: FROM 02 DEC 2019 TO FEB 2020 AT A DOSE OF 500 MG, QD,LAST DOSE ON FEB 2020
     Route: 064
  7. TRUVADA [Suspect]
     Active Substance: EMTRICITABINE\TENOFOVIR DISOPROXIL FUMARATE
     Indication: Foetal exposure during pregnancy
     Dosage: MATERNAL EXPOSURE: ON 19 NOV 2019, 445 MG, QD
     Route: 064
  8. TRUVADA [Suspect]
     Active Substance: EMTRICITABINE\TENOFOVIR DISOPROXIL FUMARATE
     Dosage: MATERNAL EXPOSURE: FROM 02 DEC 2019 TO 03 AUG 2020 AT A DOSE OF 445 MG, QD, LAST DOSE ON 03 AUG 2020
     Route: 064
  9. FLUCONAZOLE [Suspect]
     Active Substance: FLUCONAZOLE
     Indication: Foetal exposure during pregnancy
     Dosage: MATERNAL EXPOSURE: FROM 02 DEC 2029 TO JAN 2020 AT A  DOSE OF 600 MG, QD, LAST DOSE ON JAN 2020
     Route: 064
  10. ATOVAQUONE [Suspect]
     Active Substance: ATOVAQUONE
     Indication: Foetal exposure during pregnancy
     Dosage: MATERNAL EXPOSURE: FROM 02 DEC 2019 TO JAN 2020 AT A DOSE OF 1500 MG, QD, LAST DOSE ON JAN 2020
     Route: 064
  11. ISENTRESS [Suspect]
     Active Substance: RALTEGRAVIR POTASSIUM
     Indication: Foetal exposure during pregnancy
     Dosage: MATERNAL EXPOSURE: FROM 02 DEC 2019 TO 03 AUG 2020 AT A DOSE OF 800 MG, QD, STOPPED ON 03 AUG 2020
     Route: 064
  12. ETHAMBUTOL HYDROCHLORIDE [Suspect]
     Active Substance: ETHAMBUTOL HYDROCHLORIDE
     Indication: Foetal exposure during pregnancy
     Dosage: MATERNAL EXPOSURE: 350 MG, QD
     Route: 064
  13. ATOVAQUONE [Suspect]
     Active Substance: ATOVAQUONE
     Indication: Foetal exposure during pregnancy
     Dosage: MATERNAL EXPOSURE: 1500 MG, QD
     Route: 064

REACTIONS (3)
  - Phalangeal hypoplasia [Not Recovered/Not Resolved]
  - Congenital foot malformation [Not Recovered/Not Resolved]
  - Foetal exposure during pregnancy [Unknown]

NARRATIVE: CASE EVENT DATE: 20191202
